FAERS Safety Report 16195217 (Version 1)
Quarter: 2019Q2

REPORT INFORMATION
  Report Type: Spontaneous
  Country: US (occurrence: US)
  Receive Date: 20190415
  Receipt Date: 20190415
  Transmission Date: 20190711
  Serious: No
  Sender: FDA-Public Use
  Company Number: US-ASTRAZENECA-2019SE53520

PATIENT
  Sex: Female

DRUGS (2)
  1. SYNAGIS [Suspect]
     Active Substance: PALIVIZUMAB
     Route: 030
     Dates: start: 20190308
  2. SYNAGIS [Suspect]
     Active Substance: PALIVIZUMAB
     Dosage: 70.0MG UNKNOWN
     Route: 030
     Dates: start: 20190308

REACTIONS (1)
  - Respiratory tract infection viral [Not Recovered/Not Resolved]
